FAERS Safety Report 24009635 (Version 1)
Quarter: 2024Q2

REPORT INFORMATION
  Report Type: Report from Study
  Country: US (occurrence: US)
  Receive Date: 20240625
  Receipt Date: 20240625
  Transmission Date: 20240716
  Serious: Yes (Hospitalization)
  Sender: FDA-Public Use
  Company Number: US-EXELIXIS-CABO-24078626

PATIENT
  Sex: Female

DRUGS (2)
  1. CABOMETYX [Suspect]
     Active Substance: CABOZANTINIB S-MALATE
     Indication: Renal cancer
     Dosage: 40 MG, QD
     Route: 048
     Dates: start: 202405
  2. NYVEPRIA [Concomitant]
     Active Substance: PEGFILGRASTIM-APGF

REACTIONS (3)
  - Hypophagia [Unknown]
  - Asthenia [Unknown]
  - Nausea [Unknown]
